FAERS Safety Report 15871083 (Version 1)
Quarter: 2019Q1

REPORT INFORMATION
  Report Type: Spontaneous
  Country: US (occurrence: US)
  Receive Date: 20190126
  Receipt Date: 20190126
  Transmission Date: 20190417
  Serious: Yes (Hospitalization)
  Sender: FDA-Public Use
  Company Number: US-JNJFOC-20190115980

PATIENT
  Age: 5 Decade
  Sex: Male
  Weight: 65.77 kg

DRUGS (1)
  1. INVEGA [Suspect]
     Active Substance: PALIPERIDONE
     Indication: BIPOLAR DISORDER
     Route: 048

REACTIONS (2)
  - Treatment noncompliance [Unknown]
  - Condition aggravated [Unknown]
